FAERS Safety Report 9908267 (Version 1)
Quarter: 2013Q2

REPORT INFORMATION
  Report Type: Spontaneous
  Country: US (occurrence: None)
  Receive Date: 20130305
  Receipt Date: 20130305
  Transmission Date: 20140414
  Serious: Yes (Other)
  Sender: FDA-Public Use
  Company Number: 163-21880-12121372

PATIENT
  Age: 77 Year
  Sex: Female
  Weight: 56.7 kg

DRUGS (3)
  1. REVLIMID (LENALIDOMIDE) (10 MILLIGRAM, CAPSULES) [Suspect]
     Indication: PLASMA CELL MYELOMA
     Dosage: 10 MG, 21 IN 28 D, PO
     Route: 048
     Dates: start: 20100922
  2. IMODIUM (LOPERAMIDE) (UNKNOWN) [Concomitant]
  3. KAOPECTATE (KAOPECTATE) (UNKNOWN) [Concomitant]

REACTIONS (1)
  - Drug dose omission [None]
